FAERS Safety Report 10029151 (Version 2)
Quarter: 2014Q2

REPORT INFORMATION
  Report Type: Report from Study
  Country: BR (occurrence: BR)
  Receive Date: 20140321
  Receipt Date: 20140424
  Transmission Date: 20141212
  Serious: Yes (Hospitalization, Other)
  Sender: FDA-Public Use
  Company Number: PHHY2014BR034481

PATIENT
  Sex: Male
  Weight: 70 kg

DRUGS (1)
  1. TEGRETOL [Suspect]
     Indication: OFF LABEL USE
     Dosage: 3 DF, (1 TABLET IN THE MORNING AND 2 TABLETS AT NIGHT)
     Route: 048

REACTIONS (3)
  - Compulsions [Unknown]
  - Abnormal behaviour [Unknown]
  - Condition aggravated [Unknown]
